FAERS Safety Report 8102459-5 (Version None)
Quarter: 2012Q1

REPORT INFORMATION
  Report Type: 
  Country: None (occurrence: None)
  Receive Date: 20120201
  Receipt Date: 20120120
  Transmission Date: 20120608
  Serious: Yes (Hospitalization)
  Sender: FDA-Public Use
  Company Number: US-BAYER-201040645NA

PATIENT
  Age: 48 Year
  Sex: Female
  Weight: 72 kg

DRUGS (7)
  1. YAZ [Suspect]
     Indication: ACNE
  2. DROSPIRENONE AND ETHINYL ESTRADIOL [Suspect]
     Indication: ACNE
  3. IBUPROFEN [Concomitant]
     Dosage: 800 MG, TID
  4. ASPIRIN [Concomitant]
     Dosage: 325 MG, DAILY
  5. YASMIN [Suspect]
     Indication: ACNE
     Dosage: UNK
     Dates: start: 20030101, end: 20040101
  6. ASCORBIC ACID [Concomitant]
  7. MOTRIN [Concomitant]

REACTIONS (10)
  - SPIDER VEIN [None]
  - PAIN [None]
  - VENOUS INSUFFICIENCY [None]
  - DEEP VEIN THROMBOSIS [None]
  - HAEMATOMA [None]
  - VENOUS OCCLUSION [None]
  - THROMBOSIS [None]
  - INJURY [None]
  - OEDEMA [None]
  - SKIN ULCER [None]
